FAERS Safety Report 15454448 (Version 1)
Quarter: 2018Q3

REPORT INFORMATION
  Report Type: Spontaneous
  Country: US (occurrence: US)
  Receive Date: 20180928
  Receipt Date: 20180928
  Transmission Date: 20181010
  Serious: Yes (Life-Threatening, Hospitalization, Other)
  Sender: FDA-Public Use
  Company Number: None

PATIENT
  Age: 53 Year
  Sex: Female
  Weight: 54.88 kg

DRUGS (1)
  1. SPIRONOLACTONE. [Suspect]
     Active Substance: SPIRONOLACTONE
     Indication: HYPERTENSION
     Dates: start: 20180815

REACTIONS (12)
  - Headache [None]
  - Chills [None]
  - Drug dispensing error [None]
  - Nervous system disorder [None]
  - Tremor [None]
  - Myalgia [None]
  - Nausea [None]
  - Heart rate increased [None]
  - Seizure [None]
  - Burning sensation [None]
  - Arthralgia [None]
  - Product use issue [None]

NARRATIVE: CASE EVENT DATE: 20180815
